FAERS Safety Report 18590585 (Version 4)
Quarter: 2021Q1

REPORT INFORMATION
  Report Type: Report from Study
  Country: US (occurrence: US)
  Receive Date: 20201208
  Receipt Date: 20210119
  Transmission Date: 20210419
  Serious: Yes (Life-Threatening, Hospitalization, Other)
  Sender: FDA-Public Use
  Company Number: NVSC2020US231209

PATIENT
  Age: 6 Year
  Sex: Male
  Weight: 27.4 kg

DRUGS (15)
  1. ZORTRESS [Suspect]
     Active Substance: EVEROLIMUS
     Indication: GLIOMA
     Dosage: 1.4 MG, QD
     Route: 048
     Dates: start: 20191203, end: 20200814
  2. FERROUS SULFATE. [Concomitant]
     Active Substance: FERROUS SULFATE
     Indication: PRODUCT USED FOR UNKNOWN INDICATION
     Dosage: 325 MG, 1 TABLET QD 90
     Route: 048
  3. ZOFRAN [Concomitant]
     Active Substance: ONDANSETRON HYDROCHLORIDE
     Indication: NAUSEA
     Dosage: 4 MG/5 ML  TID (3 TIMES A DAY), PRN:
     Route: 048
  4. MIRALAX [Concomitant]
     Active Substance: POLYETHYLENE GLYCOL 3350
     Indication: CONSTIPATION
     Dosage: 8.5 GM PER 0.5 PACKET, PRN
     Route: 048
  5. METOPROLOL. [Concomitant]
     Active Substance: METOPROLOL
     Indication: CARDIAC DISORDER
     Dosage: UNK
     Route: 065
     Dates: end: 20200813
  6. METOPROLOL SUCCINATE. [Concomitant]
     Active Substance: METOPROLOL SUCCINATE
     Indication: PRODUCT USED FOR UNKNOWN INDICATION
     Dosage: 25 MG, 1 TABLET QD
     Route: 048
  7. AFINITOR DISPERZ [Concomitant]
     Active Substance: EVEROLIMUS
     Indication: PRODUCT USED FOR UNKNOWN INDICATION
     Dosage: 2 MG TABLET, DISPERSIBLE: 1.4 MG, ORAL, DAILY
     Route: 048
  8. CHILDRENS TYLENOL [Concomitant]
     Active Substance: ACETAMINOPHEN
     Indication: PRODUCT USED FOR UNKNOWN INDICATION
     Dosage: 160 MG/5 ML, PRN
     Route: 048
  9. MULTI VITAMINS + MINERALS [Concomitant]
     Active Substance: MINERALS\VITAMINS
     Indication: PRODUCT USED FOR UNKNOWN INDICATION
     Route: 065
  10. KISQALI [Suspect]
     Active Substance: RIBOCICLIB
     Indication: GLIOMA
     Dosage: 150 MG, QD
     Route: 048
     Dates: start: 20191203, end: 20200814
  11. PREDNISONE. [Concomitant]
     Active Substance: PREDNISONE
     Indication: PRODUCT USED FOR UNKNOWN INDICATION
     Route: 065
  12. PENTAMIDINE [Concomitant]
     Active Substance: PENTAMIDINE
     Indication: PRODUCT USED FOR UNKNOWN INDICATION
     Dosage: 105 MG, MONTHLY
     Route: 042
  13. POLYETHYLENE GLYCOL [Concomitant]
     Active Substance: POLYETHYLENE GLYCOLS
     Indication: PRODUCT USED FOR UNKNOWN INDICATION
     Dosage: 8.5 G, PRN
     Route: 048
  14. DEXAMETHASONE. [Concomitant]
     Active Substance: DEXAMETHASONE
     Indication: PRODUCT USED FOR UNKNOWN INDICATION
     Dosage: 5 ML PRN
     Route: 048
  15. VITAMIIN C [Concomitant]
     Active Substance: ASCORBIC ACID
     Indication: PRODUCT USED FOR UNKNOWN INDICATION
     Dosage: UNK, QD
     Route: 065

REACTIONS (3)
  - Conduction disorder [Recovering/Resolving]
  - Ventricular arrhythmia [Recovered/Resolved]
  - Ventricular tachycardia [Recovered/Resolved]

NARRATIVE: CASE EVENT DATE: 20200807
